FAERS Safety Report 14038976 (Version 5)
Quarter: 2017Q4

REPORT INFORMATION
  Report Type: Spontaneous
  Country: US (occurrence: US)
  Receive Date: 20171004
  Receipt Date: 20171031
  Transmission Date: 20180321
  Serious: Yes (Hospitalization)
  Sender: FDA-Public Use
  Company Number: US-ACTELION-A-NJ2017-160304

PATIENT
  Age: 79 Year
  Sex: Female
  Weight: 149.66 kg

DRUGS (21)
  1. LEXAPRO [Concomitant]
     Active Substance: ESCITALOPRAM OXALATE
     Dosage: 10 MG, QPM
     Route: 048
  2. REQUIP [Concomitant]
     Active Substance: ROPINIROLE HYDROCHLORIDE
     Dosage: 2 MG, ASDIR
  3. MYCOSTATIN [Concomitant]
     Active Substance: NYSTATIN
     Dosage: 100,000 UNK
     Route: 061
  4. BYSTOLIC [Concomitant]
     Active Substance: NEBIVOLOL HYDROCHLORIDE
     Dosage: 5 MG, QD
     Route: 048
  5. ASPIRIN. [Concomitant]
     Active Substance: ASPIRIN
     Dosage: 81 MG, QPM
     Route: 048
  6. NASONEX [Concomitant]
     Active Substance: MOMETASONE FUROATE
     Dosage: 50 MCG, BID, 1 SPRAY PRN
     Route: 055
  7. HYDROCHLOROTHIAZIDE. [Concomitant]
     Active Substance: HYDROCHLOROTHIAZIDE
     Dosage: 25 MG, QD
     Route: 048
  8. CALAN [Concomitant]
     Active Substance: VERAPAMIL HYDROCHLORIDE
     Dosage: QPM
     Route: 048
  9. OPSUMIT [Suspect]
     Active Substance: MACITENTAN
     Indication: PULMONARY ARTERIAL HYPERTENSION
     Dosage: 10 MG, UNK
     Route: 048
     Dates: start: 20170829
  10. PLAVIX [Concomitant]
     Active Substance: CLOPIDOGREL BISULFATE
     Dosage: 37.5 MG, QD
     Route: 048
  11. COENZYME Q10 [Concomitant]
     Active Substance: UBIDECARENONE
     Dosage: 100 MG, QD
     Route: 048
  12. CALTRATE WITH VITAMIN D [Concomitant]
     Active Substance: CALCIUM CARBONATE\CHOLECALCIFEROL
     Dosage: 600 MG, BID
     Route: 048
  13. ADCIRCA [Concomitant]
     Active Substance: TADALAFIL
     Dosage: 80 MG, QD
  14. PANTOPRAZOLE [Concomitant]
     Active Substance: PANTOPRAZOLE
     Dosage: 40 MG, BID
     Route: 048
  15. LEVOTHYROXINE. [Concomitant]
     Active Substance: LEVOTHYROXINE
     Dosage: 100 MCG, QD
     Route: 048
  16. ZITHROMAX [Concomitant]
     Active Substance: AZITHROMYCIN DIHYDRATE
     Dosage: 1 TAB, ASDIR
     Route: 048
  17. K-DUR [Concomitant]
     Active Substance: POTASSIUM CHLORIDE
     Dosage: 20 MEQ, BID
     Route: 048
  18. LIPITOR [Concomitant]
     Active Substance: ATORVASTATIN CALCIUM
     Dosage: 40 MG, QPM
     Route: 048
  19. NORCO [Concomitant]
     Active Substance: ACETAMINOPHEN\HYDROCODONE BITARTRATE
     Dosage: 7.5/325, PRN
  20. QVAR [Concomitant]
     Active Substance: BECLOMETHASONE DIPROPIONATE
     Dosage: 80 MCG/ACT, 7.3 GM TUBE, 2 PUFFUNK
     Route: 055
  21. LASIX [Concomitant]
     Active Substance: FUROSEMIDE
     Indication: SWELLING
     Dosage: 20 MG, QD, PRN
     Route: 048

REACTIONS (26)
  - Chest discomfort [Unknown]
  - Myalgia [Unknown]
  - Chest pain [Unknown]
  - Blood lactic acid increased [Unknown]
  - Dyspnoea exertional [Unknown]
  - Pneumonia [Unknown]
  - Hypertension [Unknown]
  - Nasal congestion [Unknown]
  - Rales [Not Recovered/Not Resolved]
  - Exercise tolerance decreased [Unknown]
  - Gait disturbance [Unknown]
  - Fluid retention [Unknown]
  - Breath sounds abnormal [Unknown]
  - Respiratory disorder [Unknown]
  - Fluid overload [Unknown]
  - Hyperlipidaemia [Unknown]
  - Therapy non-responder [Unknown]
  - Oedema [Unknown]
  - Dyspnoea [Unknown]
  - Fatigue [Unknown]
  - Orthopnoea [Unknown]
  - Oropharyngeal pain [Unknown]
  - Asthenia [Unknown]
  - Peripheral swelling [Unknown]
  - Weight increased [Not Recovered/Not Resolved]
  - Cough [Unknown]

NARRATIVE: CASE EVENT DATE: 20170915
